FAERS Safety Report 7935110-5 (Version None)
Quarter: 2011Q4

REPORT INFORMATION
  Report Type: 
  Country: None (occurrence: None)
  Receive Date: 20111122
  Receipt Date: 20111115
  Transmission Date: 20120403
  Serious: Yes (Other)
  Sender: FDA-Public Use
  Company Number: US-AMGEN-USASP2011017242

PATIENT
  Age: 63 Year
  Sex: Male

DRUGS (2)
  1. IMMUNE GLOBULIN NOS [Concomitant]
  2. NPLATE [Suspect]
     Indication: IDIOPATHIC THROMBOCYTOPENIC PURPURA
     Dosage: 7 MUG/KG, QWK
     Dates: start: 20090521, end: 20110519

REACTIONS (7)
  - LEUKOCYTOSIS [None]
  - LYMPHADENOPATHY [None]
  - ANAEMIA [None]
  - BONE MARROW RETICULIN FIBROSIS [None]
  - PLATELET COUNT ABNORMAL [None]
  - BIOPSY BONE MARROW ABNORMAL [None]
  - INJECTION SITE HAEMATOMA [None]
